FAERS Safety Report 14125855 (Version 1)
Quarter: 2017Q4

REPORT INFORMATION
  Report Type: Spontaneous
  Country: US (occurrence: US)
  Receive Date: 20171025
  Receipt Date: 20171025
  Transmission Date: 20180321
  Serious: Yes (Congenital Anomaly)
  Sender: FDA-Public Use
  Company Number: PHHY2008US046941

PATIENT
  Sex: Male

DRUGS (6)
  1. ENOXAPARIN [Concomitant]
     Active Substance: ENOXAPARIN
     Indication: FOETAL EXPOSURE DURING PREGNANCY
     Dosage: MATRERNAL DOSE 160 MG (80 MG,2 IN 1)
     Route: 064
  2. POTASSIUM CARBONATE [Concomitant]
     Active Substance: POTASSIUM CARBONATE
     Indication: FOETAL EXPOSURE DURING PREGNANCY
     Route: 064
  3. ARGATROBAN. [Suspect]
     Active Substance: ARGATROBAN
     Indication: FOETAL EXPOSURE DURING PREGNANCY
     Dosage: MATRERNAL DOSE 2-8MCG/KG/MIN
     Route: 064
  4. MULTIVITAMINS [Concomitant]
     Active Substance: VITAMINS
     Indication: FOETAL EXPOSURE DURING PREGNANCY
     Route: 064
  5. DEXAMETHASONE. [Concomitant]
     Active Substance: DEXAMETHASONE
     Indication: FOETAL EXPOSURE DURING PREGNANCY
     Dosage: MATRERNAL DOSE 40 MG (40 MG,1 IN 1 D)
     Route: 064
  6. FOLIC ACID. [Concomitant]
     Active Substance: FOLIC ACID
     Indication: FOETAL EXPOSURE DURING PREGNANCY
     Route: 064

REACTIONS (2)
  - Ventricular septal defect [Recovered/Resolved]
  - Atrial septal defect [Not Recovered/Not Resolved]
